FAERS Safety Report 8368678-8 (Version None)
Quarter: 2012Q2

REPORT INFORMATION
  Report Type: 
  Country: None (occurrence: None)
  Receive Date: 20120518
  Receipt Date: 20120509
  Transmission Date: 20120825
  Serious: No
  Sender: FDA-Public Use
  Company Number: US-BIOGENIDEC-2012BI016692

PATIENT
  Age: 34 Year
  Sex: Female

DRUGS (2)
  1. TYSABRI [Suspect]
     Indication: MULTIPLE SCLEROSIS
     Route: 042
     Dates: start: 20091216, end: 20101118
  2. STEROID INFUSION [Concomitant]
     Indication: MIGRAINE
     Dates: start: 20091216, end: 20100301

REACTIONS (1)
  - MIGRAINE [None]
